FAERS Safety Report 25534623 (Version 2)
Quarter: 2025Q3

REPORT INFORMATION
  Report Type: Spontaneous
  Country: JP (occurrence: JP)
  Receive Date: 20250709
  Receipt Date: 20250829
  Transmission Date: 20251021
  Serious: Yes (Other)
  Sender: OTSUKA
  Company Number: JP-MMM-Otsuka-JF65EMGR

PATIENT
  Age: 89 Year

DRUGS (3)
  1. REXULTI [Suspect]
     Active Substance: BREXPIPRAZOLE
     Indication: Hallucination, auditory
     Route: 065
     Dates: end: 2025
  2. REXULTI [Suspect]
     Active Substance: BREXPIPRAZOLE
     Indication: Screaming
  3. DAYVIGO [Concomitant]
     Active Substance: LEMBOREXANT
     Indication: Product used for unknown indication
     Route: 065

REACTIONS (2)
  - Pneumonia aspiration [Unknown]
  - Somnolence [Unknown]

NARRATIVE: CASE EVENT DATE: 20250606
